FAERS Safety Report 14251246 (Version 1)
Quarter: 2017Q4

REPORT INFORMATION
  Report Type: Other
  Country: DE (occurrence: DE)
  Receive Date: 20171205
  Receipt Date: 20171205
  Transmission Date: 20180321
  Serious: Yes (Hospitalization, Other)
  Sender: FDA-Public Use
  Company Number: DE-MEDICURE INC.-2036690

PATIENT
  Age: 49 Year

DRUGS (7)
  1. CLOPIDOGREL [Concomitant]
     Active Substance: CLOPIDOGREL BISULFATE
  2. STEROIDS - ANTI-INFLAMMATORY, NOT SPECIFIED [Concomitant]
  3. RECOMBINANT TISSUE PLASMINOGEN ACTIVATOR (RTPA) [Concomitant]
  4. ASPIRIN. [Concomitant]
     Active Substance: ASPIRIN
  5. CERTOPARIN - LOW MOLECULAR WEIGHT HEPARIN [Concomitant]
  6. GLYCEROL-SALINE CONTROL [Concomitant]
     Active Substance: GLYCERIN
  7. AGGRASTAT [Suspect]
     Active Substance: TIROFIBAN HYDROCHLORIDE
     Indication: ANTIPLATELET THERAPY
     Route: 041

REACTIONS (6)
  - Ischaemic stroke [Recovered/Resolved with Sequelae]
  - Nystagmus [Recovered/Resolved]
  - Diplopia [Recovered/Resolved with Sequelae]
  - Headache [Recovered/Resolved]
  - Brain oedema [Recovered/Resolved with Sequelae]
  - Mydriasis [Recovered/Resolved]

NARRATIVE: CASE EVENT DATE: 20170629
